FAERS Safety Report 24634162 (Version 2)
Quarter: 2024Q4

REPORT INFORMATION
  Report Type: Spontaneous
  Country: JP (occurrence: JP)
  Receive Date: 20241119
  Receipt Date: 20241231
  Transmission Date: 20250115
  Serious: Yes (Other)
  Sender: BRISTOL-MYERS SQUIBB COMPANY
  Company Number: JP-BRISTOL-MYERS SQUIBB COMPANY-2024-179365

PATIENT
  Age: 68 Year
  Sex: Male
  Weight: 64 kg

DRUGS (6)
  1. VIDAZA [Suspect]
     Active Substance: AZACITIDINE
     Indication: Chronic myelomonocytic leukaemia
     Dosage: IN 2024, THE PATIENT STARTED TO RECEIVE THE 1ST-3ND CYCLE OF VIDAZA (AZACITIDINE) AT 75 MG/M^2 DAILY
     Route: 042
     Dates: start: 2024, end: 202408
  2. VYXEOS [Suspect]
     Active Substance: CYTARABINE\DAUNORUBICIN
     Indication: Acute myeloid leukaemia
     Dosage: 161 UNITS /M^2
     Route: 041
     Dates: start: 20241001, end: 20241005
  3. VENETOCLAX [Suspect]
     Active Substance: VENETOCLAX
     Indication: Chronic myelomonocytic leukaemia
     Dates: start: 2024, end: 2024
  4. VENETOCLAX [Suspect]
     Active Substance: VENETOCLAX
     Dosage: IN JUN 2024, WERE OBSERVED DURING THE THIRD AZA DOSE OF THE SECOND CYCLE OF VEN+AZA THERAPY,
     Dates: start: 202406
  5. VENETOCLAX [Suspect]
     Active Substance: VENETOCLAX
     Dates: start: 2024, end: 2024
  6. NOXAFIL [Concomitant]
     Active Substance: POSACONAZOLE
     Dates: start: 2024, end: 2024

REACTIONS (8)
  - Septic shock [Recovered/Resolved]
  - Bacillus infection [Recovered/Resolved]
  - Pulmonary alveolar haemorrhage [Recovered/Resolved]
  - Transformation to acute myeloid leukaemia [Unknown]
  - Febrile neutropenia [Unknown]
  - Therapy non-responder [Unknown]
  - Platelet count decreased [Unknown]
  - Atrial fibrillation [Unknown]

NARRATIVE: CASE EVENT DATE: 20240101
